FAERS Safety Report 8401511-4 (Version None)
Quarter: 2012Q2

REPORT INFORMATION
  Report Type: 
  Country: None (occurrence: None)
  Receive Date: 20120530
  Receipt Date: 20120530
  Transmission Date: 20120825
  Serious: Yes (Life-Threatening)
  Sender: FDA-Public Use
  Company Number: None

PATIENT
  Age: 72 Year
  Sex: Male
  Weight: 72.5755 kg

DRUGS (1)
  1. CELEBREX [Suspect]
     Indication: ARTHRALGIA
     Dosage: 200 MG CAPSULEE ONLY ONE CAPSUL PO
     Route: 048
     Dates: start: 20120525, end: 20120526

REACTIONS (4)
  - LIP SWELLING [None]
  - SWELLING FACE [None]
  - PHARYNGEAL OEDEMA [None]
  - SWOLLEN TONGUE [None]
